FAERS Safety Report 7503450-X (Version None)
Quarter: 2011Q1

REPORT INFORMATION
  Report Type: 
  Country: None (occurrence: None)
  Receive Date: 20110322
  Receipt Date: 20101227
  Transmission Date: 20110831
  Serious: Yes (Hospitalization)
  Sender: FDA-Public Use
  Company Number: UTC-003689

PATIENT
  Age: 77 Year
  Sex: Female
  Weight: 43.2 kg

DRUGS (3)
  1. TYVASO [Suspect]
     Indication: PULMONARY ARTERIAL HYPERTENSION
     Dosage: 216 MCG (54 MCG, 4 IN 1 D), INHALATION
     Route: 055
     Dates: start: 20101106
  2. REVATIO [Concomitant]
  3. DIURETICS (DIURETICS) [Concomitant]

REACTIONS (1)
  - COUGH [None]
